FAERS Safety Report 7083176-X (Version None)
Quarter: 2010Q4

REPORT INFORMATION
  Report Type: 
  Country: None (occurrence: None)
  Receive Date: 20101104
  Receipt Date: 20101102
  Transmission Date: 20110411
  Serious: Yes (Hospitalization)
  Sender: FDA-Public Use
  Company Number: US-WYE-H00982807

PATIENT
  Sex: Male

DRUGS (2)
  1. ROBITUSSIN [Suspect]
     Dosage: UNKNOWN
     Route: 065
  2. HUMIBID [Suspect]
     Dosage: UNKNOWN
     Route: 048

REACTIONS (6)
  - ARRHYTHMIA [None]
  - GENITAL SWELLING [None]
  - HYPERSENSITIVITY [None]
  - PERIRECTAL ABSCESS [None]
  - RECTAL HAEMORRHAGE [None]
  - SEPTIC SHOCK [None]
